FAERS Safety Report 4634755-8 (Version None)
Quarter: 2005Q2

REPORT INFORMATION
  Report Type: 
  Country: None (occurrence: None)
  Receive Date: 20050412
  Receipt Date: 20050330
  Transmission Date: 20051028
  Serious: Yes (Life-Threatening, Hospitalization)
  Sender: FDA-Public Use
  Company Number: MK200503-0363-1

PATIENT
  Age: 2 Month
  Sex: Male

DRUGS (2)
  1. TECHNESCAN MAG3 [Suspect]
     Indication: RENAL FUNCTION TEST
     Dosage: 3 MCI, ONCE, IV
     Route: 042
     Dates: start: 20050330, end: 20050330
  2. LASIX [Concomitant]

REACTIONS (3)
  - CARDIO-RESPIRATORY ARREST [None]
  - HYDRONEPHROSIS [None]
  - VOMITING PROJECTILE [None]
